FAERS Safety Report 6576354-7 (Version None)
Quarter: 2010Q1

REPORT INFORMATION
  Report Type: 
  Country: None (occurrence: None)
  Receive Date: 20100210
  Receipt Date: 20091201
  Transmission Date: 20100710
  Serious: No
  Sender: FDA-Public Use
  Company Number: A0835215A

PATIENT
  Age: 73 Year
  Sex: Female
  Weight: 61.4 kg

DRUGS (4)
  1. OLUX E [Suspect]
     Dates: start: 20090101, end: 20091201
  2. LOVAZA [Concomitant]
     Indication: SUPPLEMENTATION THERAPY
  3. CALCIUM [Concomitant]
     Indication: SUPPLEMENTATION THERAPY
  4. OLUX [Concomitant]

REACTIONS (3)
  - DRUG INEFFECTIVE [None]
  - EYE IRRITATION [None]
  - PRODUCT QUALITY ISSUE [None]
